FAERS Safety Report 12889588 (Version 1)
Quarter: 2016Q4

REPORT INFORMATION
  Report Type: Spontaneous
  Country: CA (occurrence: CA)
  Receive Date: 20161027
  Receipt Date: 20161027
  Transmission Date: 20170207
  Serious: Yes (Hospitalization)
  Sender: FDA-Public Use
  Company Number: CA-JNJFOC-20161022398

PATIENT
  Age: 10 Year
  Sex: Female
  Weight: 25.86 kg

DRUGS (1)
  1. INVEGA [Suspect]
     Active Substance: PALIPERIDONE
     Indication: ATTENTION DEFICIT/HYPERACTIVITY DISORDER
     Route: 048

REACTIONS (8)
  - Speech disorder [Unknown]
  - Product use issue [Unknown]
  - Off label use [Unknown]
  - Drug dispensing error [Unknown]
  - Salivary hypersecretion [Unknown]
  - Facial paralysis [Unknown]
  - Heart rate increased [Unknown]
  - Intention tremor [Unknown]
